FAERS Safety Report 23331550 (Version 1)
Quarter: 2023Q4

REPORT INFORMATION
  Report Type: Spontaneous
  Country: CN (occurrence: CN)
  Receive Date: 20231222
  Receipt Date: 20231222
  Transmission Date: 20240110
  Serious: Yes (Hospitalization)
  Sender: FDA-Public Use
  Company Number: CN-BAYER-2023A178054

PATIENT
  Age: 48 Year
  Sex: Female
  Weight: 48 kg

DRUGS (1)
  1. STIVARGA [Suspect]
     Active Substance: REGORAFENIB
     Indication: Colon cancer
     Dosage: 4 DF, QD
     Route: 048
     Dates: start: 20231119, end: 20231123

REACTIONS (5)
  - Erythema [Recovered/Resolved]
  - Skin swelling [Recovered/Resolved]
  - Dermatitis allergic [Recovering/Resolving]
  - Rash maculo-papular [None]
  - Pain of skin [None]

NARRATIVE: CASE EVENT DATE: 20231123
